FAERS Safety Report 6274397-4 (Version None)
Quarter: 2009Q3

REPORT INFORMATION
  Report Type: 
  Country: None (occurrence: None)
  Receive Date: 20090720
  Receipt Date: 20090706
  Transmission Date: 20100115
  Serious: Yes (Other)
  Sender: FDA-Public Use
  Company Number: CA-GENENTECH-286921

PATIENT
  Sex: Male

DRUGS (2)
  1. OMALIZUMAB [Suspect]
     Indication: ASTHMA
     Dosage: 300 MG, UNK
     Route: 058
     Dates: start: 20090609
  2. OMALIZUMAB [Suspect]
     Dosage: 300 MG, UNK
     Dates: start: 20090706

REACTIONS (5)
  - COUGH [None]
  - HEART RATE INCREASED [None]
  - HYPERTENSION [None]
  - SNEEZING [None]
  - THROAT IRRITATION [None]
